FAERS Safety Report 5082276-3 (Version None)
Quarter: 2006Q3

REPORT INFORMATION
  Report Type: 
  Country: None (occurrence: None)
  Receive Date: 20060816
  Receipt Date: 20060816
  Transmission Date: 20061208
  Serious: No
  Sender: FDA-Public Use
  Company Number: None

PATIENT
  Age: 43 Year
  Sex: Female

DRUGS (2)
  1. MORPHINE [Suspect]
     Dosage: DRUG DELIEVERY SYSTEM
  2. DILAUDID [Suspect]

REACTIONS (4)
  - INSOMNIA [None]
  - MEDICATION ERROR [None]
  - ORAL INTAKE REDUCED [None]
  - SEDATION [None]
